FAERS Safety Report 14759215 (Version 1)
Quarter: 2018Q2

REPORT INFORMATION
  Report Type: Spontaneous
  Country: US (occurrence: US)
  Receive Date: 20180409
  Receipt Date: 20180409
  Transmission Date: 20180711
  Serious: Yes (Hospitalization)
  Sender: FDA-Public Use
  Company Number: None

PATIENT
  Age: 65 Year
  Sex: Female

DRUGS (17)
  1. BACOFEN [Concomitant]
     Active Substance: BACLOFEN
  2. OMEPRAZOLE. [Concomitant]
     Active Substance: OMEPRAZOLE
  3. ZYRTEC [Concomitant]
     Active Substance: CETIRIZINE HYDROCHLORIDE
  4. ZANAFLEX [Concomitant]
     Active Substance: TIZANIDINE HYDROCHLORIDE
  5. COENZYME [Concomitant]
     Active Substance: UBIDECARENONE
  6. CALTRATE [Concomitant]
     Active Substance: CALCIUM CARBONATE
  7. RED YEAST [Concomitant]
     Active Substance: YEAST
  8. LOSARTAN POT [Concomitant]
     Active Substance: LOSARTAN POTASSIUM
  9. LEVOXYL [Concomitant]
     Active Substance: LEVOTHYROXINE SODIUM
  10. CRANBERRY. [Concomitant]
     Active Substance: CRANBERRY
  11. TRAMDOL [Concomitant]
  12. LATANOPROST. [Concomitant]
     Active Substance: LATANOPROST
  13. CEFDINIR. [Concomitant]
     Active Substance: CEFDINIR
  14. GILENYA [Suspect]
     Active Substance: FINGOLIMOD HYDROCHLORIDE
     Indication: MULTIPLE SCLEROSIS
     Route: 048
     Dates: start: 20160522
  15. FIBER [Concomitant]
     Active Substance: PSYLLIUM HUSK
  16. FISH OIL [Concomitant]
     Active Substance: FISH OIL
  17. HYQVIA [Concomitant]
     Active Substance: HUMAN IMMUNOGLOBULIN G\HYALURONIDASE RECOMBINANT HUMAN

REACTIONS (1)
  - Blood pressure increased [None]

NARRATIVE: CASE EVENT DATE: 20180331
